FAERS Safety Report 15222405 (Version 3)
Quarter: 2019Q1

REPORT INFORMATION
  Report Type: Spontaneous
  Country: FR (occurrence: FR)
  Receive Date: 20180731
  Receipt Date: 20190128
  Transmission Date: 20190417
  Serious: Yes (Other)
  Sender: FDA-Public Use
  Company Number: FR-PFIZER INC-2018300701

PATIENT
  Age: 69 Year
  Sex: Male
  Weight: 68 kg

DRUGS (14)
  1. PRIMPERAN [Suspect]
     Active Substance: METOCLOPRAMIDE HYDROCHLORIDE
     Indication: NAUSEA
     Dosage: 30 MG, 1X/DAY
     Route: 048
     Dates: start: 20180606, end: 20180607
  2. MIDAZOLAM [Suspect]
     Active Substance: MIDAZOLAM HYDROCHLORIDE
     Indication: ANAESTHESIA
     Dosage: 2 MG, SINGLE
     Route: 042
     Dates: start: 20180604, end: 20180604
  3. DOLIPRANE [Suspect]
     Active Substance: ACETAMINOPHEN
     Indication: POSTOPERATIVE ANALGESIA
     Dosage: 3000 MG, 1X/DAY
     Route: 048
     Dates: start: 20180605, end: 20180608
  4. BUPIVACAINE. [Suspect]
     Active Substance: BUPIVACAINE
     Indication: ANAESTHESIA
     Dosage: 13 MG, SINGLE
     Route: 024
     Dates: start: 20180604, end: 20180604
  5. PARACETAMOL KABI [Suspect]
     Active Substance: ACETAMINOPHEN
     Indication: PAIN
     Dosage: 1 DF, EVERY 6 HOURS
     Route: 042
     Dates: start: 20180604, end: 20180605
  6. EPHEDRINE. [Suspect]
     Active Substance: EPHEDRINE
     Indication: PROCEDURAL HYPOTENSION
     Dosage: 30 MG, SINGLE
     Route: 042
     Dates: start: 20180604, end: 20180604
  7. SUFENTA [Suspect]
     Active Substance: SUFENTANIL CITRATE
     Indication: PROCEDURAL PAIN
     Dosage: 2.5 UG, UNK
     Route: 024
  8. TOPALGIC (TRAMADOL HYDROCHLORIDE) [Suspect]
     Active Substance: TRAMADOL HYDROCHLORIDE
     Indication: ANALGESIC THERAPY
     Dosage: 1 DF, EVERY 6 HOURS
     Route: 042
     Dates: start: 20180604, end: 20180605
  9. CEFUROXIME. [Suspect]
     Active Substance: CEFUROXIME
     Indication: ANTIBIOTIC PROPHYLAXIS
     Dosage: 1.5 G, SINGLE
     Route: 042
     Dates: start: 20180604, end: 20180604
  10. KETOPROFENE MACOPHARMA [Suspect]
     Active Substance: KETOPROFEN
     Indication: POST-TRAUMATIC PAIN
     Dosage: 100 MG, EVERY 12 HOURS
     Route: 042
     Dates: start: 20180604, end: 20180605
  11. NEOSYNEPHRINE [Suspect]
     Active Substance: PHENYLEPHRINE HYDROCHLORIDE
     Indication: PROCEDURAL HYPOTENSION
     Dosage: 100 UG, SINGLE
     Route: 042
     Dates: start: 20180604, end: 20180604
  12. NEFOPAM MYLAN [Suspect]
     Active Substance: NEFOPAM
     Indication: PROCEDURAL PAIN
     Dosage: 1 DF, EVERY 6 HOURS
     Route: 042
     Dates: start: 20180604, end: 20180605
  13. FRAGMINE [Suspect]
     Active Substance: DALTEPARIN SODIUM
     Indication: THROMBOSIS PROPHYLAXIS
     Dosage: 1 DF, 1X/DAY
     Route: 058
  14. LANSOPRAZOLE MYLAN [Suspect]
     Active Substance: LANSOPRAZOLE
     Indication: PROPHYLAXIS AGAINST GASTROINTESTINAL ULCER
     Dosage: 1 DF, 1X/DAY
     Route: 048
     Dates: start: 20180604, end: 20180608

REACTIONS (1)
  - Haemolytic anaemia [Recovered/Resolved]

NARRATIVE: CASE EVENT DATE: 20180608
